FAERS Safety Report 5765480-8 (Version None)
Quarter: 2008Q2

REPORT INFORMATION
  Report Type: 
  Country: None (occurrence: None)
  Receive Date: 20080611
  Receipt Date: 20080606
  Transmission Date: 20081010
  Serious: Yes (Life-Threatening)
  Sender: FDA-Public Use
  Company Number: B0519653A

PATIENT
  Age: 36 Year
  Sex: Female

DRUGS (5)
  1. ZANTAC [Suspect]
     Indication: PREMEDICATION
     Dosage: 50MG PER DAY
     Route: 042
     Dates: start: 20071109, end: 20080507
  2. DECADRON [Concomitant]
     Indication: PREMEDICATION
     Dosage: 4MG PER DAY
     Route: 042
  3. TAXOL [Concomitant]
     Indication: CHEMOTHERAPY
     Dosage: 141MG PER DAY
     Route: 042
  4. CARBOPLATIN [Concomitant]
     Indication: CHEMOTHERAPY
     Dosage: 250MG PER DAY
     Route: 042
  5. RESTAMIN [Concomitant]
     Indication: PREMEDICATION
     Route: 048

REACTIONS (5)
  - ANAPHYLACTIC SHOCK [None]
  - COLD SWEAT [None]
  - DEPRESSED LEVEL OF CONSCIOUSNESS [None]
  - NAUSEA [None]
  - RESPIRATORY DISORDER [None]
